FAERS Safety Report 8570096-4 (Version None)
Quarter: 2012Q3

REPORT INFORMATION
  Report Type: 
  Country: None (occurrence: None)
  Receive Date: 20120803
  Receipt Date: 20120612
  Transmission Date: 20120928
  Serious: No
  Sender: FDA-Public Use
  Company Number: US-ABBOTT-12P-163-0945567-00

PATIENT
  Sex: Female
  Weight: 88.53 kg

DRUGS (3)
  1. CRESTOR [Concomitant]
     Indication: PRODUCT USED FOR UNKNOWN INDICATION
  2. NIASPAN [Suspect]
     Indication: LIPIDS INCREASED
     Route: 048
     Dates: start: 20120430
  3. NORVASC [Concomitant]
     Indication: PRODUCT USED FOR UNKNOWN INDICATION

REACTIONS (4)
  - SKIN BURNING SENSATION [None]
  - PRURITUS GENERALISED [None]
  - ERYTHEMA [None]
  - BLOOD GLUCOSE INCREASED [None]
